FAERS Safety Report 21248603 (Version 1)
Quarter: 2022Q3

REPORT INFORMATION
  Report Type: Spontaneous
  Country: CN (occurrence: CN)
  Receive Date: 20220824
  Receipt Date: 20220824
  Transmission Date: 20221027
  Serious: Yes (Other)
  Sender: FDA-Public Use
  Company Number: None

PATIENT
  Age: 41 Year
  Sex: Female
  Weight: 56.8 kg

DRUGS (5)
  1. CYCLOPHOSPHAMIDE [Suspect]
     Active Substance: CYCLOPHOSPHAMIDE
     Indication: Breast cancer female
     Dosage: DOSAGE FORM- INJECTION, FIRST CYCLE OF AC CHEMOTHERAPY- 889 MG, QD (DILUTED WITH 0.9% SODIUM CHLORID
     Route: 041
     Dates: start: 20220718, end: 20220718
  2. SODIUM CHLORIDE [Suspect]
     Active Substance: SODIUM CHLORIDE
     Indication: Medication dilution
     Dosage: DOSAGE FORM- INJECTION, FIRST CYCLE OF AC CHEMOTHERAPY- 100 ML, QD (DILUTED WITH CYCLOPHOSPHAMIDE 88
     Route: 041
     Dates: start: 20220718, end: 20220718
  3. DEXTROSE MONOHYDRATE [Suspect]
     Active Substance: DEXTROSE MONOHYDRATE
     Indication: Medication dilution
     Dosage: DOSAGE FORM- INJECTION, FIRST CYCLE OF AC CHEMOTHERAPY- 250 ML, QD (DILUTED WITH DOXORUBICIN 52 MG)
     Route: 041
     Dates: start: 20220718, end: 20220718
  4. DOXORUBICIN HYDROCHLORIDE [Suspect]
     Active Substance: DOXORUBICIN HYDROCHLORIDE
     Indication: Breast cancer female
     Dosage: (SELF-PREPARED), FIRST CYCLE OF AC CHEMOTHERAPY- 52 MG, QD (DILUTED WITH 5% GLUCOSE 250 ML)
     Route: 041
     Dates: start: 20220718, end: 20220718
  5. JI LI FEN [Concomitant]
     Indication: Product used for unknown indication
     Dosage: 225 UG/12 VIALS, ONCE DAILY
     Route: 058
     Dates: start: 202207

REACTIONS (2)
  - White blood cell count decreased [Recovering/Resolving]
  - Neutrophil count decreased [Recovering/Resolving]

NARRATIVE: CASE EVENT DATE: 20220801
